FAERS Safety Report 14678351 (Version 5)
Quarter: 2024Q3

REPORT INFORMATION
  Report Type: Spontaneous
  Country: FR (occurrence: FR)
  Receive Date: 20180326
  Receipt Date: 20240821
  Transmission Date: 20241017
  Serious: Yes (Death)
  Sender: ROCHE
  Company Number: FR-002147023-PHHY2010FR52885

PATIENT
  Age: 38 Year
  Sex: Female

DRUGS (12)
  1. MYCOPHENOLATE MOFETIL [Suspect]
     Active Substance: MYCOPHENOLATE MOFETIL
     Indication: Allogenic stem cell transplantation
     Route: 065
  2. MYCOPHENOLATE MOFETIL [Suspect]
     Active Substance: MYCOPHENOLATE MOFETIL
     Indication: Prophylaxis against graft versus host disease
  3. VORICONAZOLE [Suspect]
     Active Substance: VORICONAZOLE
     Indication: Scopulariopsis infection
     Dosage: 400 MG, QD (200 MG, 2X/DAY)
     Route: 065
  4. CYCLOSPORINE [Suspect]
     Active Substance: CYCLOSPORINE
     Indication: Allogenic stem cell transplantation
     Route: 065
     Dates: start: 2007
  5. CYCLOSPORINE [Suspect]
     Active Substance: CYCLOSPORINE
     Indication: Prophylaxis against graft versus host disease
  6. AMBISOME [Suspect]
     Active Substance: AMPHOTERICIN B
     Indication: Fusarium infection
     Route: 065
  7. AMBISOME [Suspect]
     Active Substance: AMPHOTERICIN B
     Indication: Scopulariopsis infection
     Route: 065
  8. AMBISOME [Suspect]
     Active Substance: AMPHOTERICIN B
     Indication: Bronchopulmonary aspergillosis
  9. TEICOPLANIN [Concomitant]
     Active Substance: TEICOPLANIN
     Indication: Bacterial infection
  10. CASPOFUNGIN ACETATE [Concomitant]
     Active Substance: CASPOFUNGIN ACETATE
     Indication: Scopulariopsis infection
     Route: 065
  11. CASPOFUNGIN ACETATE [Concomitant]
     Active Substance: CASPOFUNGIN ACETATE
     Dosage: 70 MG, UNK (LOADING DOSE)
     Route: 065
  12. CEFTAZIDIME [Concomitant]
     Active Substance: CEFTAZIDIME
     Indication: Bacterial infection

REACTIONS (13)
  - Skin necrosis [Fatal]
  - Chronic graft versus host disease [Fatal]
  - Graft versus host disease in skin [Fatal]
  - Drug ineffective [Fatal]
  - Lung disorder [Fatal]
  - Graft versus host disease in liver [Fatal]
  - Multiple organ dysfunction syndrome [Fatal]
  - Graft versus host disease in gastrointestinal tract [Fatal]
  - Inflammation [Fatal]
  - Off label use [Unknown]
  - Scopulariopsis infection [Fatal]
  - Renal neoplasm [Fatal]
  - Fungal test positive [Fatal]

NARRATIVE: CASE EVENT DATE: 20071001
